FAERS Safety Report 24692025 (Version 1)
Quarter: 2024Q4

REPORT INFORMATION
  Report Type: Spontaneous
  Country: RU (occurrence: RU)
  Receive Date: 20241203
  Receipt Date: 20241203
  Transmission Date: 20250115
  Serious: Yes (Hospitalization, Other)
  Sender: ALEXION PHARMACEUTICALS
  Company Number: RU-AstraZeneca-CH-00753823A

PATIENT
  Age: 7 Year

DRUGS (1)
  1. KOSELUGO [Suspect]
     Active Substance: SELUMETINIB
     Dosage: UNK

REACTIONS (3)
  - Cystitis [Not Recovered/Not Resolved]
  - Haematuria [Not Recovered/Not Resolved]
  - Urinary tract infection [Not Recovered/Not Resolved]
